FAERS Safety Report 9508388 (Version 3)
Quarter: 2013Q4

REPORT INFORMATION
  Report Type: Spontaneous
  Country: US (occurrence: US)
  Receive Date: 20130909
  Receipt Date: 20131017
  Transmission Date: 20140711
  Serious: Yes (Hospitalization, Other)
  Sender: FDA-Public Use
  Company Number: US-009507513-1309USA001173

PATIENT
  Sex: Female
  Weight: 111.11 kg

DRUGS (2)
  1. NUVARING [Suspect]
     Indication: CONTRACEPTION
     Dosage: UNK
     Route: 067
     Dates: start: 201005, end: 201109
  2. NUVARING [Suspect]
     Indication: MENSTRUAL CYCLE MANAGEMENT

REACTIONS (9)
  - Pulmonary embolism [Not Recovered/Not Resolved]
  - Haemangioma of liver [Unknown]
  - Body dysmorphic disorder [Unknown]
  - Libido decreased [Not Recovered/Not Resolved]
  - Off label use [Unknown]
  - Local swelling [Unknown]
  - Pain in extremity [Unknown]
  - Skin disorder [Unknown]
  - Pain [Unknown]
